FAERS Safety Report 12990915 (Version 1)
Quarter: 2016Q4

REPORT INFORMATION
  Report Type: Spontaneous
  Country: US (occurrence: US)
  Receive Date: 20161130
  Receipt Date: 20161130
  Transmission Date: 20170207
  Serious: Yes (Life-Threatening, Disabling, Other)
  Sender: FDA-Public Use
  Company Number: None

PATIENT
  Age: 62 Year
  Sex: Female
  Weight: 88.2 kg

DRUGS (7)
  1. METOPROLOL. [Concomitant]
     Active Substance: METOPROLOL
  2. LOW DOSE ASPIRIN [Concomitant]
     Active Substance: ASPIRIN
  3. LOSARTAN. [Concomitant]
     Active Substance: LOSARTAN
  4. METFORMIN [Concomitant]
     Active Substance: METFORMIN HYDROCHLORIDE
  5. ALLOPURINOL. [Suspect]
     Active Substance: ALLOPURINOL
     Indication: GOUT
     Dosage: ?          QUANTITY:1 TABLET(S);?
     Route: 048
     Dates: start: 20160613, end: 20160721
  6. ULORIC [Concomitant]
     Active Substance: FEBUXOSTAT
  7. CLARITIN [Concomitant]
     Active Substance: LORATADINE

REACTIONS (11)
  - Pyrexia [None]
  - Scar [None]
  - Nail disorder [None]
  - Lip swelling [None]
  - Erythema [None]
  - Onychoclasis [None]
  - Hypersensitivity [None]
  - Rash [None]
  - Pruritus [None]
  - Stevens-Johnson syndrome [None]
  - Skin hyperpigmentation [None]

NARRATIVE: CASE EVENT DATE: 20160630
